FAERS Safety Report 9291481 (Version 1)
Quarter: 2013Q2

REPORT INFORMATION
  Report Type: Spontaneous
  Country: US (occurrence: US)
  Receive Date: 20130515
  Receipt Date: 20130515
  Transmission Date: 20140414
  Serious: No
  Sender: FDA-Public Use
  Company Number: US-ASTRAZENECA-2013SE28564

PATIENT
  Age: 78 Year
  Sex: Female
  Weight: 86.2 kg

DRUGS (7)
  1. ARIMIDEX [Suspect]
     Indication: BREAST CANCER
     Route: 048
     Dates: end: 20130405
  2. ARIMIDEX [Suspect]
     Indication: BREAST CANCER
     Route: 065
     Dates: start: 20130406
  3. LYRICA [Concomitant]
     Indication: ARTHRITIS
     Dosage: UNKNOWN, THREE TIMES DAILY
     Dates: start: 20130416
  4. DIURETIC [Concomitant]
     Indication: FLUID RETENTION
  5. BLOOD PRESSURE MEDICINE [Concomitant]
     Indication: HYPERTENSION
  6. POTASSIUM [Concomitant]
     Indication: BLOOD POTASSIUM DECREASED
  7. IRON [Concomitant]
     Indication: BLOOD IRON DECREASED

REACTIONS (2)
  - Arthritis [Recovering/Resolving]
  - Expired drug administered [Unknown]
